FAERS Safety Report 8610068 (Version 3)
Quarter: 2013Q1

REPORT INFORMATION
  Report Type: Spontaneous
  Country: US (occurrence: US)
  Receive Date: 20120612
  Receipt Date: 20130320
  Transmission Date: 20140127
  Serious: Yes (Congenital Anomaly, Other)
  Sender: FDA-Public Use
  Company Number: US-PFIZER INC-2012137182

PATIENT
  Sex: Male

DRUGS (3)
  1. ZOLOFT [Suspect]
     Dosage: UNK
     Route: 064
     Dates: start: 200208, end: 200301
  2. IRON TABS [Concomitant]
     Dosage: UNK
     Route: 064
  3. KEFLEX [Concomitant]
     Dosage: UNK
     Route: 064

REACTIONS (5)
  - Maternal exposure during pregnancy [Unknown]
  - Heart disease congenital [Not Recovered/Not Resolved]
  - Developmental delay [Unknown]
  - Palpitations [Unknown]
  - Asthma [Unknown]
